FAERS Safety Report 5739954-X (Version None)
Quarter: 2008Q2

REPORT INFORMATION
  Report Type: 
  Country: None (occurrence: None)
  Receive Date: 20080513
  Receipt Date: 20080513
  Transmission Date: 20081010
  Serious: Yes (Hospitalization)
  Sender: FDA-Public Use
  Company Number: None

PATIENT
  Age: 87 Year
  Sex: Male

DRUGS (2)
  1. TERAZOSIN HCL [Suspect]
     Indication: BENIGN PROSTATIC HYPERPLASIA
     Dosage: 5 MG EVERY DAY PO
     Route: 048
     Dates: start: 20031125, end: 20080502
  2. VALSARTAN [Suspect]
     Indication: HYPERTENSION
     Dosage: 40 MG EVERY DAY PO
     Route: 048
     Dates: start: 20060918, end: 20080502

REACTIONS (5)
  - DEHYDRATION [None]
  - DIZZINESS [None]
  - FALL [None]
  - HYPOTENSION [None]
  - VISION BLURRED [None]
